FAERS Safety Report 22345006 (Version 1)
Quarter: 2023Q2

REPORT INFORMATION
  Report Type: Report from Study
  Country: FR (occurrence: FR)
  Receive Date: 20230519
  Receipt Date: 20230519
  Transmission Date: 20230722
  Serious: Yes (Hospitalization, Other)
  Sender: FDA-Public Use
  Company Number: FR-002147023-NVSC2023FR112498

PATIENT
  Age: 73 Year
  Sex: Male
  Weight: 68 kg

DRUGS (8)
  1. PLUVICTO [Suspect]
     Active Substance: LUTETIUM LU-177 VIPIVOTIDE TETRAXETAN
     Indication: Hormone-refractory prostate cancer
     Dosage: 7322 MBQ, ONCE (CYCLE 1)
     Route: 042
     Dates: start: 20221208, end: 20221208
  2. PLUVICTO [Suspect]
     Active Substance: LUTETIUM LU-177 VIPIVOTIDE TETRAXETAN
     Dosage: 7319 MBQ, ONCE (CYCLE 2)
     Route: 042
     Dates: start: 20230119, end: 20230119
  3. PLUVICTO [Suspect]
     Active Substance: LUTETIUM LU-177 VIPIVOTIDE TETRAXETAN
     Dosage: 7155 MBQ, ONCE (CYCLE 3) (VIA PORT-ACATH)
     Route: 042
     Dates: start: 20230309, end: 20230309
  4. OXYCONTIN [Concomitant]
     Active Substance: OXYCODONE HYDROCHLORIDE
     Indication: Pain
     Dosage: 10 MG, BID
     Route: 065
     Dates: start: 20221019, end: 20230420
  5. ENANTONE LP [Concomitant]
     Active Substance: LEUPROLIDE ACETATE
     Indication: Antiandrogen therapy
     Dosage: 10 MG, QD
     Route: 065
     Dates: start: 20221019, end: 20230420
  6. ACETAMINOPHEN [Concomitant]
     Active Substance: ACETAMINOPHEN
     Indication: Pain
     Dosage: 1000 MG
     Route: 065
     Dates: start: 20221019
  7. OXYCODONE HYDROCHLORIDE [Concomitant]
     Active Substance: OXYCODONE HYDROCHLORIDE
     Indication: Pain
     Dosage: 10 MG (4X DAILY)
     Route: 065
     Dates: start: 20221019, end: 20230420
  8. DENOSUMAB [Concomitant]
     Active Substance: DENOSUMAB
     Indication: Product used for unknown indication
     Dosage: UNK
     Route: 065

REACTIONS (5)
  - Anaemia [Unknown]
  - Hormone-refractory prostate cancer [Unknown]
  - Malignant neoplasm progression [Unknown]
  - Asthenia [Unknown]
  - Pallor [Unknown]

NARRATIVE: CASE EVENT DATE: 20230420
